FAERS Safety Report 10012738 (Version 1)
Quarter: 2014Q1

REPORT INFORMATION
  Report Type: Spontaneous
  Country: BE (occurrence: BE)
  Receive Date: 20140314
  Receipt Date: 20140314
  Transmission Date: 20141002
  Serious: Yes (Hospitalization)
  Sender: FDA-Public Use
  Company Number: BE-DAIICHI SANKYO EUROPE GMBH-DSE-2014-100122

PATIENT
  Sex: 0

DRUGS (2)
  1. AMLODIPINE BESILATE W/ OLMESARTAN MEDOXOMIL [Suspect]
     Indication: HYPERTENSION
     Dosage: UNK UNK, QD
     Dates: start: 2012
  2. BELSAR [Suspect]
     Indication: HYPERTENSION
     Dosage: UNK

REACTIONS (3)
  - Bronchitis [Unknown]
  - Diarrhoea [Recovered/Resolved]
  - Vomiting [Recovered/Resolved]
